FAERS Safety Report 5673965-8 (Version None)
Quarter: 2008Q1

REPORT INFORMATION
  Report Type: 
  Country: None (occurrence: None)
  Receive Date: 20080317
  Receipt Date: 20080228
  Transmission Date: 20080703
  Serious: Yes (Hospitalization)
  Sender: FDA-Public Use
  Company Number: 2008US000483

PATIENT
  Age: 58 Year
  Sex: Male

DRUGS (11)
  1. AMBISOME [Suspect]
     Indication: MYELOFIBROSIS
     Dosage: 3 MG/KG, 3XWEEKLY, IV NOS; 7 MG/KG, WEEKLY, IV NOS
     Route: 042
     Dates: start: 20071217, end: 20080109
  2. AMBISOME [Suspect]
     Indication: MYELOFIBROSIS
     Dosage: 3 MG/KG, 3XWEEKLY, IV NOS; 7 MG/KG, WEEKLY, IV NOS
     Route: 042
     Dates: start: 20080116, end: 20080206
  3. CYCLOSPORINE [Suspect]
     Indication: GRAFT VERSUS HOST DISEASE
     Dates: start: 20071210
  4. ATENOLOL [Concomitant]
  5. ACYCLOVIR [Concomitant]
  6. BACTRIM DS [Concomitant]
  7. OMEPRAZOLE [Concomitant]
  8. ASPIRIN [Concomitant]
  9. FOLIC ACID [Concomitant]
  10. LORAZEPAM [Concomitant]
  11. LOPERAMIDE (LOPERAMIDE OXIDE) [Concomitant]

REACTIONS (8)
  - BLOOD BILIRUBIN INCREASED [None]
  - BLOOD CREATININE INCREASED [None]
  - BLOOD FIBRINOGEN INCREASED [None]
  - DIARRHOEA [None]
  - FATIGUE [None]
  - PANCREATITIS [None]
  - PERITONEAL EFFUSION [None]
  - THROMBOCYTOPENIC PURPURA [None]
